FAERS Safety Report 9758106 (Version 1)
Quarter: 2013Q4

REPORT INFORMATION
  Report Type: Spontaneous
  Country: US (occurrence: US)
  Receive Date: 20131216
  Receipt Date: 20131216
  Transmission Date: 20140711
  Serious: No
  Sender: FDA-Public Use
  Company Number: US-BAYER-2013-151084

PATIENT
  Sex: Male

DRUGS (1)
  1. MIRENA [Suspect]
     Route: 064

REACTIONS (8)
  - Injury [None]
  - Developmental delay [None]
  - General physical health deterioration [None]
  - Social problem [None]
  - Cognitive disorder [None]
  - Exposure during pregnancy [None]
  - Pain [None]
  - Premature baby [None]
